FAERS Safety Report 17153536 (Version 32)
Quarter: 2023Q4

REPORT INFORMATION
  Report Type: Report from Study
  Country: BE (occurrence: BE)
  Receive Date: 20191213
  Receipt Date: 20231202
  Transmission Date: 20240110
  Serious: Yes (Hospitalization, Other)
  Sender: FDA-Public Use
  Company Number: BE-BAYER-2019-159740

PATIENT
  Age: 71 Year
  Sex: Female

DRUGS (24)
  1. STIVARGA [Suspect]
     Active Substance: REGORAFENIB
     Indication: Hepatocellular carcinoma
     Dosage: 80 MG DAILY
     Dates: start: 20190613, end: 2019
  2. STIVARGA [Suspect]
     Active Substance: REGORAFENIB
     Indication: Hepatocellular carcinoma
     Dosage: 80 MG DAILY
     Dates: start: 20190826, end: 20200320
  3. STIVARGA [Suspect]
     Active Substance: REGORAFENIB
     Indication: Hepatocellular carcinoma
     Dosage: 80 MG DAILY
     Dates: start: 20200330, end: 20200403
  4. STIVARGA [Suspect]
     Active Substance: REGORAFENIB
     Indication: Hepatocellular carcinoma
     Dosage: DAILY DOSE 80 MG
     Dates: start: 20200427
  5. CEFUROXIME [Suspect]
     Active Substance: CEFUROXIME
     Indication: Bacterial infection
     Dosage: 500 MG DAILY
     Dates: start: 201911
  6. POTASSIUM CHLORIDE [Concomitant]
     Active Substance: POTASSIUM CHLORIDE
     Dosage: 600 2 CO/D
     Dates: start: 20190607
  7. ACULARE [Concomitant]
     Dosage: UNK
     Dates: start: 20190625
  8. ISONIAZID [Concomitant]
     Active Substance: ISONIAZID
     Indication: Tuberculosis
     Dosage: UNK
     Dates: start: 20190705
  9. MEDROL [Concomitant]
     Active Substance: METHYLPREDNISOLONE
     Indication: Steroid therapy
     Dosage: 16 MG
     Dates: start: 20190708, end: 2019
  10. MEDROL [Concomitant]
     Active Substance: METHYLPREDNISOLONE
     Indication: Steroid therapy
     Dosage: DAILY DOSE 4 MG
     Dates: start: 20190930
  11. RISPERDAL [Concomitant]
     Active Substance: RISPERIDONE
     Dosage: UNK
  12. GLUCOPHAGE [Concomitant]
     Active Substance: METFORMIN HYDROCHLORIDE
     Indication: Diabetes mellitus
     Dosage: UNK
  13. CLARITHROMYCIN [Concomitant]
     Active Substance: CLARITHROMYCIN
     Indication: Bacterial infection
     Dosage: UNK
     Dates: start: 20191023, end: 20191031
  14. CLARITHROMYCIN [Concomitant]
     Active Substance: CLARITHROMYCIN
     Indication: Respiratory tract infection
     Dosage: 500 MG
     Dates: start: 20200117, end: 20200127
  15. AFFUSINE [Concomitant]
     Indication: Skin bacterial infection
     Dosage: UNK
     Dates: start: 20191023
  16. JANUVIA [Concomitant]
     Active Substance: SITAGLIPTIN PHOSPHATE
     Indication: Diabetes mellitus
     Dosage: 100 MG/D
     Dates: start: 20191030
  17. BETAMETHASONE VALERATE\FUSIDIC ACID [Concomitant]
     Active Substance: BETAMETHASONE VALERATE\FUSIDIC ACID
     Indication: Skin infection
     Dosage: UNK
     Dates: start: 201910
  18. CALCIUM PHOSPHATE, DIBASIC, ANHYDROUS\MAGNESIUM GLYCEROPHOSPHATE\PHOSP [Concomitant]
     Active Substance: CALCIUM PHOSPHATE, DIBASIC, ANHYDROUS\MAGNESIUM GLYCEROPHOSPHATE\PHOSPHORIC ACID\SODIUM PHOSPHATE, D
     Dosage: 50DR 3X/D
     Dates: start: 201912
  19. RHINA [Concomitant]
     Dosage: UNK
     Dates: start: 20200117
  20. FERROUS SULFATE [Concomitant]
     Active Substance: FERROUS SULFATE
     Indication: Iron deficiency anaemia
     Dosage: DAILY DOSE 80 MG
     Dates: start: 20200117
  21. AMOXICILLIN [Concomitant]
     Active Substance: AMOXICILLIN
     Dosage: 1000 MG
     Dates: start: 20200121, end: 20200201
  22. GLYCOSAMINOGLYCANS [Concomitant]
     Active Substance: GLYCOSAMINOGLYCANS
     Dosage: UNK
  23. POLYETHYLENE GLYCOL\POTASSIUM CHLORIDE\SODIUM BICARBONATE\SODIUM CHLOR [Concomitant]
     Active Substance: POLYETHYLENE GLYCOL\POTASSIUM CHLORIDE\SODIUM BICARBONATE\SODIUM CHLORIDE
     Indication: Constipation
     Dosage: UNK
     Dates: start: 202005
  24. POLYETHYLENE GLYCOL\POTASSIUM CHLORIDE\SODIUM BICARBONATE\SODIUM CHLOR [Concomitant]
     Active Substance: POLYETHYLENE GLYCOL\POTASSIUM CHLORIDE\SODIUM BICARBONATE\SODIUM CHLORIDE
     Indication: Constipation
     Dosage: UNK
     Dates: start: 202005

REACTIONS (46)
  - Sepsis [Recovering/Resolving]
  - Infection [Not Recovered/Not Resolved]
  - Tooth abscess [Recovered/Resolved]
  - Constipation [Recovering/Resolving]
  - Change of bowel habit [Recovering/Resolving]
  - Chills [Recovered/Resolved]
  - Cough [Recovered/Resolved]
  - Sneezing [Recovered/Resolved]
  - Rhinorrhoea [Not Recovered/Not Resolved]
  - Muscular weakness [Not Recovered/Not Resolved]
  - Muscular weakness [Recovering/Resolving]
  - Balance disorder [Unknown]
  - Feeling abnormal [Recovering/Resolving]
  - Muscular weakness [Not Recovered/Not Resolved]
  - Joint swelling [Recovered/Resolved]
  - Blood iron decreased [Not Recovered/Not Resolved]
  - Skin ulcer [Recovered/Resolved]
  - Blood glucose increased [Recovering/Resolving]
  - Facial pain [Recovered/Resolved]
  - Palmar-plantar erythrodysaesthesia syndrome [Not Recovered/Not Resolved]
  - Fatigue [Not Recovered/Not Resolved]
  - Dysphonia [Not Recovered/Not Resolved]
  - Abdominal pain upper [Recovering/Resolving]
  - Decreased appetite [Recovering/Resolving]
  - Arthralgia [Recovered/Resolved]
  - Abdominal pain [Recovered/Resolved]
  - Mucosal inflammation [Recovering/Resolving]
  - Toothache [Not Recovered/Not Resolved]
  - Alopecia [Not Recovered/Not Resolved]
  - Abdominal pain [Recovering/Resolving]
  - Bronchitis [Recovered/Resolved]
  - Weight decreased [Recovering/Resolving]
  - Neck pain [Recovering/Resolving]
  - Hyperaesthesia teeth [Unknown]
  - Blood pressure increased [Not Recovered/Not Resolved]
  - Diarrhoea [None]
  - Oropharyngeal pain [None]
  - Abdominal pain upper [Recovering/Resolving]
  - Chest pain [Recovering/Resolving]
  - White blood cell count decreased [Unknown]
  - Dysphonia [Not Recovered/Not Resolved]
  - Off label use [None]
  - Weight decreased [Recovering/Resolving]
  - Joint swelling [Recovering/Resolving]
  - Blood test normal [None]
  - Depressed mood [Not Recovered/Not Resolved]

NARRATIVE: CASE EVENT DATE: 20190801
